FAERS Safety Report 14024065 (Version 2)
Quarter: 2017Q4

REPORT INFORMATION
  Report Type: Report from Study
  Country: US (occurrence: US)
  Receive Date: 20170929
  Receipt Date: 20171004
  Transmission Date: 20180321
  Serious: Yes (Other)
  Sender: FDA-Public Use
  Company Number: US-EISAI MEDICAL RESEARCH-EC-2017-031163

PATIENT
  Age: 70 Year
  Sex: Male
  Weight: 60 kg

DRUGS (17)
  1. LENVIMA [Suspect]
     Active Substance: LENVATINIB
     Indication: RENAL CANCER
     Route: 048
     Dates: start: 20170904, end: 201709
  2. WARFARIN [Concomitant]
     Active Substance: WARFARIN
  3. HYDROCODONE-ACETAMINOPHEN [Concomitant]
     Active Substance: ACETAMINOPHEN\HYDROCODONE
  4. DULOXETINE. [Concomitant]
     Active Substance: DULOXETINE
  5. SPIRONOLACTONE. [Concomitant]
     Active Substance: SPIRONOLACTONE
  6. VITAMIN B6 [Concomitant]
     Active Substance: PYRIDOXINE HYDROCHLORIDE
  7. OMEPRAZOLE. [Concomitant]
     Active Substance: OMEPRAZOLE
  8. MORPHINE [Concomitant]
     Active Substance: MORPHINE
  9. LANTUS [Concomitant]
     Active Substance: INSULIN GLARGINE
  10. LOPRESSOR [Concomitant]
     Active Substance: METOPROLOL TARTRATE
  11. HYDROCORTISONE-ACETIC ACID [Concomitant]
  12. VITAMIN D3 [Concomitant]
     Active Substance: CHOLECALCIFEROL
  13. AFINITOR [Concomitant]
     Active Substance: EVEROLIMUS
  14. NOVOLOG [Concomitant]
     Active Substance: INSULIN ASPART
  15. LENVIMA [Suspect]
     Active Substance: LENVATINIB
     Route: 048
     Dates: start: 20170914
  16. RANITIDINE. [Concomitant]
     Active Substance: RANITIDINE
  17. ISOSORBIDE MONONITRATE. [Concomitant]
     Active Substance: ISOSORBIDE MONONITRATE

REACTIONS (1)
  - Cardiac failure [Not Recovered/Not Resolved]

NARRATIVE: CASE EVENT DATE: 201709
